FAERS Safety Report 7713636-7 (Version None)
Quarter: 2011Q3

REPORT INFORMATION
  Report Type: 
  Country: None (occurrence: None)
  Receive Date: 20110826
  Receipt Date: 20110823
  Transmission Date: 20111222
  Serious: Yes (Death)
  Sender: FDA-Public Use
  Company Number: PHHY2011DE75640

PATIENT
  Age: 15 Year
  Sex: Male

DRUGS (4)
  1. OXALIPLATIN [Suspect]
     Indication: BONE SARCOMA
     Dosage: 85 MG/M2, Q2H
     Route: 042
  2. GEMCITABINE [Suspect]
     Dosage: 1000 MG/M2, Q2H
     Route: 042
  3. IRINOTECAN HCL [Suspect]
     Indication: BONE SARCOMA
     Dosage: 175 MG/M2, Q2H
     Route: 042
  4. GEMCITABINE [Suspect]
     Indication: BONE SARCOMA
     Dosage: 1000 MG/M2/0.5 HR
     Route: 042

REACTIONS (2)
  - HAEMATOTOXICITY [None]
  - DEATH [None]
